FAERS Safety Report 12444204 (Version 1)
Quarter: 2016Q2

REPORT INFORMATION
  Report Type: Spontaneous
  Country: US (occurrence: US)
  Receive Date: 20160607
  Receipt Date: 20160607
  Transmission Date: 20160815
  Serious: No
  Sender: FDA-Public Use
  Company Number: US-SA-2016SA064964

PATIENT
  Age: 61 Year
  Sex: Male

DRUGS (6)
  1. TOUJEO [Suspect]
     Active Substance: INSULIN GLARGINE
     Indication: TYPE 2 DIABETES MELLITUS
     Dosage: DOSE:130 UNIT(S)
     Route: 065
     Dates: start: 20160326
  2. SOLOSTAR [Concomitant]
     Active Substance: DEVICE
     Indication: TYPE 2 DIABETES MELLITUS
     Dates: start: 20160326
  3. LEVEMIR [Concomitant]
     Active Substance: INSULIN DETEMIR
     Dosage: DOSE:130 UNIT(S)
  4. INSULIN [Concomitant]
     Active Substance: INSULIN NOS
     Dosage: DOSE:450 UNIT(S)
  5. NOVOLOG [Concomitant]
     Active Substance: INSULIN ASPART
  6. FLEXPEN [Concomitant]
     Active Substance: UNSPECIFIED INGREDIENT

REACTIONS (2)
  - Product use issue [Unknown]
  - Injection site mass [Not Recovered/Not Resolved]
